FAERS Safety Report 10480182 (Version 2)
Quarter: 2014Q4

REPORT INFORMATION
  Report Type: Spontaneous
  Country: US (occurrence: US)
  Receive Date: 20140929
  Receipt Date: 20141013
  Transmission Date: 20150528
  Serious: Yes (Other)
  Sender: FDA-Public Use
  Company Number: US-009507513-1409USA007795

PATIENT
  Age: 20 Year
  Sex: Female
  Weight: 81.63 kg

DRUGS (1)
  1. NEXPLANON [Suspect]
     Active Substance: ETONOGESTREL
     Dosage: UNK
     Route: 059
     Dates: start: 20140424, end: 20140909

REACTIONS (9)
  - Device dislocation [Recovered/Resolved]
  - Device breakage [Recovered/Resolved]
  - Injection site discomfort [Unknown]
  - Implant site bruising [Recovered/Resolved]
  - Abdominal pain [Recovered/Resolved]
  - Implant site pain [Recovered/Resolved]
  - Nausea [Recovered/Resolved]
  - Device kink [Recovered/Resolved]
  - Back pain [Unknown]

NARRATIVE: CASE EVENT DATE: 20140902
